FAERS Safety Report 19902577 (Version 1)
Quarter: 2021Q3

REPORT INFORMATION
  Report Type: Spontaneous
  Country: CA (occurrence: CA)
  Receive Date: 20210930
  Receipt Date: 20210930
  Transmission Date: 20211014
  Serious: Yes (Hospitalization)
  Sender: FDA-Public Use
  Company Number: CA-TEVA-2021-CA-1958450

PATIENT
  Age: 19 Year
  Sex: Female
  Weight: 82 kg

DRUGS (15)
  1. DEXAMETHASONE. [Concomitant]
     Active Substance: DEXAMETHASONE
     Route: 065
  2. LYRICA [Concomitant]
     Active Substance: PREGABALIN
  3. MINERAL OIL. [Concomitant]
     Active Substance: MINERAL OIL
  4. MESNA. [Suspect]
     Active Substance: MESNA
     Indication: EWING^S SARCOMA
     Route: 065
  5. METHOTRIMEPRAZINE [Concomitant]
     Active Substance: LEVOMEPROMAZINE
  6. LAX?A?DAY [Concomitant]
     Active Substance: POLYETHYLENE GLYCOL 3350
  7. ZINECARD [Suspect]
     Active Substance: DEXRAZOXANE HYDROCHLORIDE
     Indication: EWING^S SARCOMA
     Route: 065
  8. CYCLOPHOSPHAMIDE. [Suspect]
     Active Substance: CYCLOPHOSPHAMIDE
     Indication: EWING^S SARCOMA
     Route: 065
  9. ADRIAMYCIN [Suspect]
     Active Substance: DOXORUBICIN HYDROCHLORIDE
     Indication: EWING^S SARCOMA
     Route: 065
  10. FILGRASTIM [Concomitant]
     Active Substance: FILGRASTIM
  11. OLANZAPINE. [Concomitant]
     Active Substance: OLANZAPINE
  12. VINCRISTINE SULFATE. [Suspect]
     Active Substance: VINCRISTINE SULFATE
     Indication: EWING^S SARCOMA
     Route: 065
  13. EMEND [Concomitant]
     Active Substance: APREPITANT
  14. MORPHINE [Concomitant]
     Active Substance: MORPHINE
  15. ONDANSETRON [Concomitant]
     Active Substance: ONDANSETRON

REACTIONS (1)
  - Febrile neutropenia [Recovered/Resolved]
